FAERS Safety Report 9403176 (Version 1)
Quarter: 2013Q3

REPORT INFORMATION
  Report Type: Spontaneous
  Country: US (occurrence: None)
  Receive Date: 20130715
  Receipt Date: 20130715
  Transmission Date: 20140515
  Serious: Yes (Disabling, Other)
  Sender: FDA-Public Use
  Company Number: None

PATIENT
  Sex: Male
  Weight: 94.8 kg

DRUGS (1)
  1. DYAZIDE [Suspect]
     Dosage: 27.5 LOWERING AND OR ANYTHING ELSE, IGNORED.

REACTIONS (10)
  - Muscle spasms [None]
  - Hypoaesthesia [None]
  - Hypoaesthesia [None]
  - Pain in extremity [None]
  - Sensory disturbance [None]
  - Arthralgia [None]
  - Pain in extremity [None]
  - Feeling abnormal [None]
  - Paraesthesia [None]
  - Hypertension [None]
